FAERS Safety Report 6308274-7 (Version None)
Quarter: 2009Q3

REPORT INFORMATION
  Report Type: 
  Country: None (occurrence: None)
  Receive Date: 20090813
  Receipt Date: 20090803
  Transmission Date: 20100115
  Serious: Yes (Hospitalization)
  Sender: FDA-Public Use
  Company Number: GB-ABBOTT-09P-167-0584228-00

PATIENT
  Age: 72 Year
  Sex: Female

DRUGS (11)
  1. WARFARIN SODIUM [Suspect]
     Indication: THROMBOSIS PROPHYLAXIS
     Dates: end: 20030901
  2. ZOTON CAPSULES [Suspect]
     Indication: DRUG USE FOR UNKNOWN INDICATION
  3. FLUOXETINE [Suspect]
     Indication: DRUG USE FOR UNKNOWN INDICATION
  4. TPN [Suspect]
     Indication: NUTRITIONAL SUPPORT
     Dosage: 38 KCAL/KG/DAY WITH 1.4 GM/KG/DAY LIPIDS
  5. TPN [Suspect]
     Dosage: 25 KCAL/KG/DAY WITH LIPIDS 0.35 GM/KG/DAY
  6. LEVOTHYROXINE [Concomitant]
     Indication: DRUG USE FOR UNKNOWN INDICATION
  7. LOPERAMIDE [Concomitant]
     Indication: DRUG USE FOR UNKNOWN INDICATION
     Dosage: NOT REPORTED
  8. TEMAZEPAM [Concomitant]
     Indication: DRUG USE FOR UNKNOWN INDICATION
     Dosage: NOT REPORTED
  9. CODEINE [Concomitant]
     Indication: DRUG USE FOR UNKNOWN INDICATION
     Dosage: NOT REPORTED
  10. URSODIOL [Concomitant]
     Indication: PRURITUS
  11. STRUCTOLIPID [Concomitant]
     Indication: NUTRITIONAL SUPPORT

REACTIONS (9)
  - CONDITION AGGRAVATED [None]
  - FEEDING DISORDER [None]
  - GENERAL PHYSICAL HEALTH DETERIORATION [None]
  - HEPATOTOXICITY [None]
  - HYPOREFLEXIA [None]
  - HYPOTHYROIDISM [None]
  - INTESTINAL ISCHAEMIA [None]
  - MESENTERIC ARTERY THROMBOSIS [None]
  - SEPSIS [None]
